FAERS Safety Report 16845552 (Version 1)
Quarter: 2019Q3

REPORT INFORMATION
  Report Type: Spontaneous
  Country: US (occurrence: US)
  Receive Date: 20190924
  Receipt Date: 20190924
  Transmission Date: 20191005
  Serious: Yes (Hospitalization)
  Sender: FDA-Public Use
  Company Number: US-HIKMA PHARMACEUTICALS USA INC.-US-H14001-19-05051

PATIENT
  Age: 74 Year
  Sex: Female

DRUGS (20)
  1. DEXAMETHASONE. [Suspect]
     Active Substance: DEXAMETHASONE
     Indication: ACUTE LYMPHOCYTIC LEUKAEMIA
     Dosage: DAILY FOR 4 DAYS ON DAYS 1-4 AND DAYS 11-14 (APPROXIMATE), REGIMEN A: CYCLES 1, 3, 7,9
     Route: 042
  2. INOTUZUMAB OZOGAMICIN [Suspect]
     Active Substance: INOTUZUMAB OZOGAMICIN
     Dosage: ON DAYS 2 AND 8 OF CYCLES 2 AND 4 (APPROXIMATE), REGIMEN B: CYCLES 2, 4, 8, 10
     Route: 042
  3. BLINATUMOMAB [Suspect]
     Active Substance: BLINATUMOMAB
     Indication: ACUTE LYMPHOCYTIC LEUKAEMIA
     Dosage: CONTINUOUS IV DAYS 1-4 (CYCLE 5 ONLY), REGIMEN C: CYCLES 5, 6, 11, 12
     Route: 042
  4. BLINATUMOMAB [Suspect]
     Active Substance: BLINATUMOMAB
     Dosage: CONTINUOUS IV DAYS 4-29 (CYCLE 5 ONLY), REGIMEN C: CYCLES 5, 6, 11, 12
     Route: 042
  5. PREDNISONE. [Suspect]
     Active Substance: PREDNISONE
     Indication: ACUTE LYMPHOCYTIC LEUKAEMIA
     Dosage: DAILY X 5 EVERY MONTH FOR 1 YEAR
     Route: 048
  6. METHOTREXATE. [Suspect]
     Active Substance: METHOTREXATE
     Indication: ACUTE LYMPHOCYTIC LEUKAEMIA
     Dosage: OVER 2 HRS ON DAY 1, REGIMEN B: CYCLES 2, 4, 8, 10
     Route: 042
  7. METHOTREXATE. [Suspect]
     Active Substance: METHOTREXATE
     Dosage: WEEKLY, CYCLE M
     Route: 048
  8. MERCAPTOPURINE. [Suspect]
     Active Substance: MERCAPTOPURINE
     Indication: ACUTE LYMPHOCYTIC LEUKAEMIA
     Dosage: UP TO 3 YEARS, CYCLE M
     Route: 048
  9. CYTARABINE. [Suspect]
     Active Substance: CYTARABINE
     Indication: ACUTE LYMPHOCYTIC LEUKAEMIA
     Dosage: OVER 3 HOURS TWICE A DAY X 4 DOSES ON DAYS 2 AND 3, REGIMEN B: CYCLES 2, 4, 8, 10
     Route: 042
  10. CYCLOPHOSPHAMIDE. [Suspect]
     Active Substance: CYCLOPHOSPHAMIDE
     Indication: ACUTE LYMPHOCYTIC LEUKAEMIA
     Dosage: OVER 3 HOURS TWICE A DAY ON DAYS 1-3, REGIMEN A: CYCLES 1, 3, 7, 9
     Route: 042
  11. INOTUZUMAB OZOGAMICIN [Suspect]
     Active Substance: INOTUZUMAB OZOGAMICIN
     Indication: ACUTE LYMPHOCYTIC LEUKAEMIA
     Dosage: OVER 1 HOUR ON DAYS 2 AND 8 OF CYCLES 1 AND 3 (APPROXIMATE), REGIMEN A: CYCLES 1, 3, 7, 9
     Route: 042
     Dates: start: 20190131
  12. VINCRISTINE [Suspect]
     Active Substance: VINCRISTINE
     Indication: ACUTE LYMPHOCYTIC LEUKAEMIA
     Dosage: DAY 1 AND DAY 8 (APPROXIMATE), REGIMEN A: CYCLES 1, 3, 7, 9
     Route: 042
  13. RITUXIMAB. [Suspect]
     Active Substance: RITUXIMAB
     Indication: ACUTE LYMPHOCYTIC LEUKAEMIA
     Dosage: ON DAY 2 AND DAY 8 OF CYCLES 1 AND 3, REGIMEN B: CYCLES 2, 4, 8, 10
     Route: 042
  14. RITUXIMAB. [Suspect]
     Active Substance: RITUXIMAB
     Dosage: ON DAY 2 AND 8 OF CYCLES 2 AND 4
     Route: 042
  15. PEGFILGRASTIM [Suspect]
     Active Substance: PEGFILGRASTIM
     Indication: ACUTE LYMPHOCYTIC LEUKAEMIA
     Dosage: (OR FILGRASTIM 5-10 MCG/KG DAILY) ON DAY 4, REGIMEN A: CYCLES 1, 3, 7,9
     Route: 058
  16. VINCRISTINE [Suspect]
     Active Substance: VINCRISTINE
     Dosage: MONTHLY FOR 1 YEAR, CYCLE M
     Route: 042
  17. METHOTREXATE. [Suspect]
     Active Substance: METHOTREXATE
     Dosage: OVER 22 HOURS ON DAY 1, REGIMEN B: CYCLES 2, 4, 8, 10
     Route: 040
  18. PEGFILGRASTIM [Suspect]
     Active Substance: PEGFILGRASTIM
     Dosage: (OR FILGRASTIM 5-10 MCG/KG DAILY), REGIMEN B: CYCLES 2, 4, 8, 10
     Route: 058
  19. BLINATUMOMAB [Suspect]
     Active Substance: BLINATUMOMAB
     Dosage: CONTINUOUS INFUSION DAYS 1-29 (CYCLES 6, 11 AND 12)
     Route: 042
  20. MESNA. [Suspect]
     Active Substance: MESNA
     Indication: ACUTE LYMPHOCYTIC LEUKAEMIA
     Dosage: DAILY OVER 24 HOURS FOR 3 DAYS ON DAYS 1-3, REGIMEN A: CYCLES 1, 3, 7, 9
     Route: 042

REACTIONS (1)
  - Mental status changes [Recovered/Resolved]

NARRATIVE: CASE EVENT DATE: 20190713
